FAERS Safety Report 13297607 (Version 1)
Quarter: 2017Q1

REPORT INFORMATION
  Report Type: Spontaneous
  Country: US (occurrence: US)
  Receive Date: 20170303
  Receipt Date: 20170303
  Transmission Date: 20170428
  Serious: Yes (Disabling)
  Sender: FDA-Public Use
  Company Number: None

PATIENT
  Age: 60 Year
  Sex: Male
  Weight: 81.9 kg

DRUGS (1)
  1. LEVOFLOXACIN TABLETS,500MG [Suspect]
     Active Substance: LEVOFLOXACIN
     Indication: BRONCHITIS
     Dosage: ?          QUANTITY:10 TABLET(S);?
     Route: 048
     Dates: start: 20170116, end: 20170117

REACTIONS (6)
  - Hypersensitivity [None]
  - Rash pruritic [None]
  - Impaired quality of life [None]
  - Anxiety [None]
  - Tendon rupture [None]
  - Injury [None]
